FAERS Safety Report 9700056 (Version 3)
Quarter: 2014Q1

REPORT INFORMATION
  Report Type: Spontaneous
  Country: US (occurrence: US)
  Receive Date: 20131121
  Receipt Date: 20140117
  Transmission Date: 20141002
  Serious: Yes (Death, Hospitalization, Other)
  Sender: FDA-Public Use
  Company Number: US-009507513-1311USA007627

PATIENT
  Sex: Male
  Weight: 75 kg

DRUGS (21)
  1. ISENTRESS [Suspect]
     Dosage: UNK
     Route: 048
  2. ISENTRESS [Suspect]
     Dosage: A DOSE CRUSHED AND GIVEN THROUGH NASOGASTRIC TUBE
     Dates: start: 201311, end: 201311
  3. COZAAR [Suspect]
  4. PRILOSEC [Suspect]
     Route: 048
  5. MAXALT [Suspect]
     Route: 048
  6. AMLODIPINE [Concomitant]
  7. CLONAZEPAM [Concomitant]
  8. LACOSAMIDE [Concomitant]
  9. LAMIVUDINE [Concomitant]
  10. COMPAZINE [Concomitant]
  11. BACTRIM [Concomitant]
  12. IMITREX (SUMATRIPTAN) [Concomitant]
  13. FLOMAX (MORNIFLUMATE) [Concomitant]
  14. TENOFOVIR [Concomitant]
  15. KEPPRA [Concomitant]
  16. VICODIN [Concomitant]
  17. CALCIUM ACETATE [Concomitant]
  18. PHOSLO [Concomitant]
  19. KLONOPIN [Concomitant]
  20. NORVASC [Concomitant]
  21. VIREAD [Concomitant]

REACTIONS (14)
  - Myocardial infarction [Fatal]
  - Hypoxic-ischaemic encephalopathy [Fatal]
  - Cardiac arrest [Fatal]
  - Gastrointestinal haemorrhage [Fatal]
  - Pneumonitis [Fatal]
  - Acute myocardial infarction [Fatal]
  - Gastrointestinal tube insertion [Not Recovered/Not Resolved]
  - Drug dose omission [Unknown]
  - Wrong technique in drug usage process [Unknown]
  - Incorrect route of drug administration [Unknown]
  - Metabolic acidosis [Unknown]
  - Hyperkalaemia [Unknown]
  - Pneumonia aspiration [Unknown]
  - Cardiac failure congestive [Unknown]
